FAERS Safety Report 7885533-8 (Version None)
Quarter: 2011Q4

REPORT INFORMATION
  Report Type: 
  Country: None (occurrence: None)
  Receive Date: 20111102
  Receipt Date: 20110630
  Transmission Date: 20120403
  Serious: No
  Sender: FDA-Public Use
  Company Number: US-AMGEN-USASP2011031720

PATIENT
  Age: 60 Year
  Sex: Female
  Weight: 115.65 kg

DRUGS (2)
  1. METHOTREXATE [Concomitant]
     Dosage: 1 MG, QWK
     Dates: start: 20070101
  2. ENBREL [Suspect]
     Indication: RHEUMATOID ARTHRITIS
     Dosage: 50 MG, QWK
     Dates: start: 20090601

REACTIONS (7)
  - RHINORRHOEA [None]
  - COUGH [None]
  - NAUSEA [None]
  - ARTHRALGIA [None]
  - PNEUMONIA [None]
  - EYE PAIN [None]
  - ALOPECIA [None]
